FAERS Safety Report 26192630 (Version 1)
Quarter: 2025Q4

REPORT INFORMATION
  Report Type: Spontaneous
  Country: CA (occurrence: CA)
  Receive Date: 20251223
  Receipt Date: 20251223
  Transmission Date: 20260118
  Serious: Yes (Hospitalization)
  Sender: FRESENIUS KABI
  Company Number: CA-FreseniusKabi-FK202517310

PATIENT
  Age: 62 Year
  Sex: Male
  Weight: 117 kg

DRUGS (1)
  1. VANCOMYCIN HYDROCHLORIDE [Suspect]
     Active Substance: VANCOMYCIN HYDROCHLORIDE
     Indication: Joint surgery
     Dosage: FOA: POWDER FOR SOLUTION INTRAVENOUS?FREQUENCY: ONCE
     Route: 061

REACTIONS (2)
  - Blood creatinine increased [Recovering/Resolving]
  - Blood pressure decreased [Recovering/Resolving]
